FAERS Safety Report 7009540 (Version 5)
Quarter: 2025Q1

REPORT INFORMATION
  Report Type: Spontaneous
  Country: US (occurrence: US)
  Receive Date: 20090603
  Receipt Date: 20250324
  Transmission Date: 20250408
  Serious: Yes (Hospitalization, Congenital Anomaly, Other)
  Sender: AMGEN
  Company Number: US-AMGEN-US348785

PATIENT
  Sex: Male
  Weight: 3.2 kg

DRUGS (31)
  1. ENBREL [Suspect]
     Active Substance: ETANERCEPT
     Indication: Exposure during pregnancy
     Route: 064
  2. ENBREL [Suspect]
     Active Substance: ETANERCEPT
     Route: 063
  3. ENOXAPARIN [Concomitant]
     Active Substance: ENOXAPARIN
     Dosage: 40 MILLIGRAM, BID
     Route: 064
     Dates: start: 20080104
  4. FAMOTIDINE [Concomitant]
     Active Substance: FAMOTIDINE
     Dosage: 20 MILLIGRAM, BID
     Route: 064
  5. ASPIRIN [Concomitant]
     Active Substance: ASPIRIN
     Dosage: 81 MG, QD
     Route: 064
  6. ASPIRIN [Concomitant]
     Active Substance: ASPIRIN
     Dosage: 81 MG, QD
     Route: 064
  7. FOLIC ACID [Concomitant]
     Active Substance: FOLIC ACID
     Dosage: 4 G, QD
     Route: 064
  8. FOLIC ACID [Concomitant]
     Active Substance: FOLIC ACID
     Dosage: 4 G, QD
     Route: 064
  9. ASCORBIC ACID [Concomitant]
     Active Substance: ASCORBIC ACID
     Dosage: 4000 MILLIGRAM, QD
     Route: 064
  10. ASCORBIC ACID [Concomitant]
     Active Substance: ASCORBIC ACID
     Dosage: 4000 MILLIGRAM, QD
     Route: 064
  11. CALCIUM [Concomitant]
     Active Substance: CALCIUM
     Indication: Milk allergy
     Dosage: 2000 MG, BID
     Route: 064
  12. CALCIUM [Concomitant]
     Active Substance: CALCIUM
     Dosage: 2000 MG, BID
     Route: 064
  13. VITAMIN B COMPLEX [Concomitant]
     Active Substance: CYANOCOBALAMIN\DEXPANTHENOL\NIACINAMIDE\PYRIDOXINE HYDROCHLORIDE\RIBOFLAVIN 5^-PHOSPHATE SODIUM\THIA
     Route: 064
  14. VITAMINS [Concomitant]
     Active Substance: VITAMINS
     Dosage: UNK UNK, 1X/DAY
     Route: 064
  15. LORATADINE [Concomitant]
     Active Substance: LORATADINE
     Dosage: 10 MILLIGRAM, QD
     Route: 064
  16. LORATADINE [Concomitant]
     Active Substance: LORATADINE
     Dosage: 10 MILLIGRAM, QD
     Route: 064
  17. FLUTICASONE PROPIONATE [Concomitant]
     Active Substance: FLUTICASONE PROPIONATE
     Dosage: UNK, BID
     Route: 064
  18. FLUTICASONE PROPIONATE [Concomitant]
     Active Substance: FLUTICASONE PROPIONATE
     Dosage: UNK, BID
     Route: 064
  19. FLUTICASONE PROPIONATE\SALMETEROL XINAFOATE [Concomitant]
     Active Substance: FLUTICASONE PROPIONATE\SALMETEROL XINAFOATE
     Dosage: UNK, BID
     Route: 064
  20. ARMOUR THYROID [Concomitant]
     Active Substance: THYROID, PORCINE
     Indication: Tri-iodothyronine decreased
     Dosage: 30 MILLIGRAM, QD
     Route: 064
  21. FISH OIL [Concomitant]
     Active Substance: FISH OIL
     Indication: Rheumatoid arthritis
     Dosage: 1 GRAM, BID
     Route: 064
  22. ALBUTEROL SULFATE [Concomitant]
     Active Substance: ALBUTEROL SULFATE
     Route: 064
  23. CLINDAMYCIN [Concomitant]
     Active Substance: CLINDAMYCIN
     Route: 064
  24. CLINDAMYCIN [Concomitant]
     Active Substance: CLINDAMYCIN
     Route: 064
  25. METHOTREXATE [Concomitant]
     Active Substance: METHOTREXATE
     Dates: start: 2004, end: 2004
  26. PLAQUENIL [Concomitant]
     Active Substance: HYDROXYCHLOROQUINE SULFATE
     Route: 064
  27. PEPCID [Concomitant]
     Active Substance: FAMOTIDINE
     Route: 064
  28. HEPARIN [Concomitant]
     Active Substance: HEPARIN SODIUM
     Route: 064
  29. ALBUTEROL [Concomitant]
     Active Substance: ALBUTEROL
     Route: 064
  30. SERETIDE [Concomitant]
     Active Substance: FLUTICASONE PROPIONATE\SALMETEROL XINAFOATE
     Route: 064
  31. VITAMINS [Concomitant]
     Active Substance: VITAMINS
     Route: 064

REACTIONS (11)
  - Bladder diverticulum [Unknown]
  - Renal hypertrophy [Unknown]
  - Reflux nephropathy [Unknown]
  - Urinary tract infection [Unknown]
  - Respiratory syncytial virus infection [Recovered/Resolved]
  - Clostridium difficile infection [Recovered/Resolved]
  - Palatal disorder [Unknown]
  - Exposure via breast milk [Unknown]
  - Spinal deformity [Unknown]
  - Premature baby [Unknown]
  - Maternal exposure during pregnancy [Unknown]

NARRATIVE: CASE EVENT DATE: 20080101
